FAERS Safety Report 8054720 (Version 3)
Quarter: 2013Q3

REPORT INFORMATION
  Report Type: Spontaneous
  Country: US (occurrence: US)
  Receive Date: 20110726
  Receipt Date: 20130816
  Transmission Date: 20140515
  Serious: Yes (Hospitalization, Other)
  Sender: FDA-Public Use
  Company Number: US-ROCHE-791125

PATIENT
  Age: 14 Year
  Sex: Female
  Weight: 52.21 kg

DRUGS (2)
  1. ACCUTANE [Suspect]
     Indication: ACNE
     Dosage: DOSE: 40 MG QAM AND 10 MG QHS
     Route: 065
     Dates: start: 19980530, end: 199810
  2. NUVARING [Concomitant]

REACTIONS (8)
  - Diverticulitis [Unknown]
  - Gastrointestinal disorder [Unknown]
  - Intestinal obstruction [Unknown]
  - Depression [Unknown]
  - Lip dry [Unknown]
  - Blood triglycerides increased [Unknown]
  - Blood cholesterol increased [Unknown]
  - Back pain [Unknown]
